FAERS Safety Report 6150238-0 (Version None)
Quarter: 2009Q2

REPORT INFORMATION
  Report Type: 
  Country: None (occurrence: None)
  Receive Date: 20090409
  Receipt Date: 20090401
  Transmission Date: 20091009
  Serious: Yes (Hospitalization)
  Sender: FDA-Public Use
  Company Number: ES-AVENTIS-200913423GDDC

PATIENT
  Age: 54 Year
  Sex: Female

DRUGS (5)
  1. DOCETAXEL [Suspect]
     Route: 042
     Dates: start: 20080609, end: 20080721
  2. CETUXIMAB [Suspect]
     Dosage: DOSE: UNK
     Route: 042
     Dates: start: 20080609, end: 20081008
  3. CISPLATIN [Suspect]
     Route: 042
     Dates: start: 20080609, end: 20080926
  4. FLUOROURACIL [Suspect]
     Dates: start: 20080609, end: 20080721
  5. RADIOTHERAPY [Suspect]
     Dosage: DOSE: 66 GY
     Dates: start: 20080825, end: 20081013

REACTIONS (3)
  - HYPOCALCAEMIA [None]
  - LARYNGEAL OEDEMA [None]
  - PYREXIA [None]
